FAERS Safety Report 6069590-X (Version None)
Quarter: 2009Q1

REPORT INFORMATION
  Report Type: 
  Country: None (occurrence: None)
  Receive Date: 20090206
  Receipt Date: 20090127
  Transmission Date: 20090719
  Serious: Yes (Other)
  Sender: FDA-Public Use
  Company Number: GB-MERCK-0901GBR00088

PATIENT
  Age: 35 Year
  Sex: Female

DRUGS (5)
  1. DECADRON [Suspect]
     Indication: ADRENOGENITAL SYNDROME
     Route: 048
  2. DECADRON [Suspect]
     Route: 048
  3. FLUDROCORTISONE [Suspect]
     Indication: ADRENOGENITAL SYNDROME
     Route: 065
  4. FLUDROCORTISONE [Suspect]
     Route: 065
  5. TOPIRAMATE [Suspect]
     Indication: CONVULSION
     Route: 048
     Dates: start: 20050301

REACTIONS (2)
  - ADRENAL INSUFFICIENCY [None]
  - DRUG INTERACTION [None]
